FAERS Safety Report 7242634-5 (Version None)
Quarter: 2011Q1

REPORT INFORMATION
  Report Type: 
  Country: None (occurrence: None)
  Receive Date: 20110125
  Receipt Date: 20110117
  Transmission Date: 20110831
  Serious: Yes (Hospitalization)
  Sender: FDA-Public Use
  Company Number: US-US-EMD SERONO, INC.-7036943

PATIENT
  Sex: Male

DRUGS (1)
  1. REBIF [Suspect]
     Indication: MULTIPLE SCLEROSIS
     Route: 058
     Dates: start: 20090619

REACTIONS (4)
  - ELECTROLYTE IMBALANCE [None]
  - HEADACHE [None]
  - PHARYNGITIS STREPTOCOCCAL [None]
  - UPPER-AIRWAY COUGH SYNDROME [None]
